FAERS Safety Report 6761199-5 (Version None)
Quarter: 2010Q2

REPORT INFORMATION
  Report Type: 
  Country: None (occurrence: None)
  Receive Date: 20100602
  Receipt Date: 20080430
  Transmission Date: 20101027
  Serious: No
  Sender: FDA-Public Use
  Company Number: 2008-00069

PATIENT
  Age: 52 Year
  Sex: Female
  Weight: 90.7194 kg

DRUGS (14)
  1. ZICAM COLD REMEDY NASAL GEL [Suspect]
     Indication: NASOPHARYNGITIS
     Dosage: 6 DOSES X 1 DAY
     Dates: start: 20080323, end: 20080324
  2. LAMICTAL [Concomitant]
  3. CELEXA [Concomitant]
  4. KLONOPIN [Concomitant]
  5. INDERAL [Concomitant]
  6. NEXIUM [Concomitant]
  7. MULTIVITAMIN WITH IRON [Concomitant]
  8. PROGESTERONE [Concomitant]
  9. ESTRADIOL [Concomitant]
  10. BONIVA [Concomitant]
  11. SULFA [Concomitant]
  12. MIRALAX [Concomitant]
  13. BIOTIN [Concomitant]
  14. FLAX SEED OIL [Concomitant]

REACTIONS (2)
  - AGEUSIA [None]
  - ANOSMIA [None]
